FAERS Safety Report 5367321-X (Version None)
Quarter: 2007Q2

REPORT INFORMATION
  Report Type: 
  Country: None (occurrence: None)
  Receive Date: 20070622
  Receipt Date: 20060420
  Transmission Date: 20071010
  Serious: No
  Sender: FDA-Public Use
  Company Number: US-ASTRAZENECA-2006UW07158

PATIENT
  Age: 3 Year
  Sex: Female

DRUGS (4)
  1. PULMICORT RESPULES [Suspect]
     Route: 055
     Dates: start: 20040428
  2. XOPENEX [Suspect]
     Indication: ASTHMA
     Route: 055
     Dates: start: 20040428, end: 20040503
  3. XOPENEX [Suspect]
     Route: 055
     Dates: start: 20040504, end: 20040505
  4. FLUMICORT [Suspect]
     Dates: start: 20040428

REACTIONS (1)
  - POLLAKIURIA [None]
